FAERS Safety Report 6064639-2 (Version None)
Quarter: 2009Q1

REPORT INFORMATION
  Report Type: 
  Country: None (occurrence: None)
  Receive Date: 20090204
  Receipt Date: 20080220
  Transmission Date: 20090719
  Serious: No
  Sender: FDA-Public Use
  Company Number: A0708676A

PATIENT
  Age: 60 Year
  Sex: Male

DRUGS (4)
  1. ARIXTRA [Suspect]
     Dosage: 2.5MG SINGLE DOSE
     Route: 058
     Dates: start: 20080206
  2. PERCOCET [Concomitant]
  3. CARVEDILOL [Concomitant]
  4. UNKNOWN MEDICATION [Concomitant]

REACTIONS (1)
  - DRUG ADMINISTERED AT INAPPROPRIATE SITE [None]
